FAERS Safety Report 9618386 (Version 1)
Quarter: 2013Q4

REPORT INFORMATION
  Report Type: Spontaneous
  Country: US (occurrence: US)
  Receive Date: 20131014
  Receipt Date: 20131014
  Transmission Date: 20140711
  Serious: No
  Sender: FDA-Public Use
  Company Number: US-009507513-1310USA005276

PATIENT
  Sex: Male

DRUGS (3)
  1. PEGINTRON [Suspect]
     Indication: HEPATITIS C
     Dosage: VIAL
     Dates: start: 20111109, end: 20120627
  2. PEGINTRON [Suspect]
     Dosage: REDIPEN
     Dates: start: 20120627, end: 20120720
  3. REBETOL [Suspect]
     Indication: HEPATITIS C
     Dosage: UNK
     Route: 048
     Dates: start: 20111109, end: 20120720

REACTIONS (1)
  - Blood disorder [Unknown]
